FAERS Safety Report 16910819 (Version 1)
Quarter: 2019Q4

REPORT INFORMATION
  Report Type: Spontaneous
  Country: US (occurrence: US)
  Receive Date: 20190820
  Receipt Date: 20190820
  Transmission Date: 20200122
  Serious: No
  Sender: FDA-Public Use
  Company Number: None

PATIENT
  Age: 58 Year
  Sex: Male
  Weight: 95 kg

DRUGS (1)
  1. DULOXETINE. [Suspect]
     Active Substance: DULOXETINE
     Route: 048
     Dates: start: 20190125, end: 20190325

REACTIONS (2)
  - Abdominal discomfort [None]
  - Drug intolerance [None]

NARRATIVE: CASE EVENT DATE: 20190325
